FAERS Safety Report 16148357 (Version 1)
Quarter: 2019Q2

REPORT INFORMATION
  Report Type: Spontaneous
  Country: CH (occurrence: CH)
  Receive Date: 20190402
  Receipt Date: 20190402
  Transmission Date: 20190711
  Serious: Yes (Hospitalization, Other)
  Sender: FDA-Public Use
  Company Number: CH-ACELLA PHARMACEUTICALS, LLC-2065126

PATIENT
  Age: 9 Year
  Sex: Female

DRUGS (4)
  1. PARACETAMOL [Concomitant]
     Active Substance: ACETAMINOPHEN
  2. BROMPHENIRAMINE MAL, PSEUDOEPHEDRINE HCL, AND DEXTROMETHORPHAN HBR (AN [Suspect]
     Active Substance: DEXBROMPHENIRAMINE MALEATE\DEXTROMETHORPHAN HYDROBROMIDE\PSEUDOEPHEDRINE HYDROCHLORIDE
     Indication: COUGH
     Route: 048
  3. IVY SYRUP [Concomitant]
  4. IBUPROFEN. [Concomitant]
     Active Substance: IBUPROFEN

REACTIONS (7)
  - Enuresis [Recovering/Resolving]
  - Mutism [Recovering/Resolving]
  - Aggression [Recovering/Resolving]
  - Developmental regression [Recovering/Resolving]
  - Dissociative disorder [Recovering/Resolving]
  - Somnolence [Not Recovered/Not Resolved]
  - Apathy [Recovering/Resolving]
